FAERS Safety Report 15150682 (Version 1)
Quarter: 2018Q3

REPORT INFORMATION
  Report Type: Spontaneous
  Country: JP (occurrence: JP)
  Receive Date: 20180716
  Receipt Date: 20180716
  Transmission Date: 20181010
  Serious: Yes (Other)
  Sender: FDA-Public Use
  Company Number: JP-009507513-1807JPN001349J

PATIENT
  Age: 67 Year
  Sex: Male
  Weight: 58 kg

DRUGS (9)
  1. SPIRONOLACTONE. [Concomitant]
     Active Substance: SPIRONOLACTONE
     Route: 065
  2. SODIUM RABEPRAZOLE [Concomitant]
     Active Substance: RABEPRAZOLE SODIUM
     Route: 065
  3. SOVALDI [Suspect]
     Active Substance: SOFOSBUVIR
     Indication: CHRONIC HEPATITIS C
     Dosage: 1 DF, UNK
     Route: 048
     Dates: start: 20151105, end: 20151212
  4. REBETOL [Suspect]
     Active Substance: RIBAVIRIN
     Indication: CHRONIC HEPATITIS C
     Dosage: 200 MG, UNK
     Route: 048
     Dates: start: 20151105, end: 20151212
  5. WARFARIN K [Concomitant]
     Active Substance: WARFARIN POTASSIUM
     Route: 065
  6. MAGMITT [Concomitant]
     Active Substance: MAGNESIUM OXIDE
     Route: 065
  7. ANCARON [Concomitant]
     Active Substance: AMIODARONE HYDROCHLORIDE
     Dosage: UNK
     Route: 065
     Dates: end: 20151105
  8. ALOSITOL [Concomitant]
     Active Substance: ALLOPURINOL
     Route: 065
  9. FUROSEMIDE. [Concomitant]
     Active Substance: FUROSEMIDE
     Route: 065

REACTIONS (3)
  - Hepatitis C [Unknown]
  - Drug ineffective [Unknown]
  - Pulse abnormal [Unknown]
